FAERS Safety Report 5474290-0 (Version None)
Quarter: 2007Q4

REPORT INFORMATION
  Report Type: 
  Country: None (occurrence: None)
  Receive Date: 20071002
  Receipt Date: 20070725
  Transmission Date: 20080405
  Serious: No
  Sender: FDA-Public Use
  Company Number: US-ASTRAZENECA-2007UW17960

PATIENT
  Age: 70 Year
  Sex: Female
  Weight: 67.1 kg

DRUGS (4)
  1. ARIMIDEX [Suspect]
     Indication: BREAST CANCER FEMALE
     Route: 048
     Dates: start: 20060901
  2. COZAAR [Concomitant]
  3. NORVASC [Concomitant]
  4. FOSAMAX [Concomitant]

REACTIONS (2)
  - ARTHRALGIA [None]
  - SCIATICA [None]
